FAERS Safety Report 14108491 (Version 2)
Quarter: 2017Q4

REPORT INFORMATION
  Report Type: Spontaneous
  Country: US (occurrence: US)
  Receive Date: 20171019
  Receipt Date: 20171122
  Transmission Date: 20180321
  Serious: No
  Sender: FDA-Public Use
  Company Number: US-LEXICON PHARMACEUTICALS, INC-17-1606-00914

PATIENT
  Age: 47 Year
  Sex: Male

DRUGS (13)
  1. PROCHLORPERAZINE. [Concomitant]
     Active Substance: PROCHLORPERAZINE
     Indication: NAUSEA
     Dosage: AS NEEDED
     Route: 048
  2. CYPROHEPTADINE. [Concomitant]
     Active Substance: CYPROHEPTADINE
     Route: 048
  3. LOMOTIL [Concomitant]
     Active Substance: ATROPINE SULFATE\DIPHENOXYLATE HYDROCHLORIDE
     Indication: DIARRHOEA
     Dosage: 2.5 - 0.025 MG TABLET, 2 TAB ORALLY EVERY 6-8 HOURS AS NEEDED FOR DIARRHEA
     Route: 048
  4. MELATONIN [Concomitant]
     Active Substance: MELATONIN
     Route: 048
  5. LIPASE-PROTEASE-AMYLASE [Concomitant]
     Dosage: 36,000 - 114,000 - 180,000 UNITS; 1 CAPSULE WITH MEALS
     Route: 048
  6. NIACINAMIDE [Concomitant]
     Active Substance: NIACINAMIDE
     Route: 048
  7. ZOFRAN [Concomitant]
     Active Substance: ONDANSETRON HYDROCHLORIDE
     Dosage: AS NEEDED
  8. CLACKS SOLUTION [Concomitant]
     Indication: STOMATITIS
     Dosage: 5 ML TO AFFECTED MUCOSAL AREA 4 TIMES DAILY AS NEEDED. SWISH AND SWALLOW AS NEEDED.
     Route: 048
  9. TEMODAR [Concomitant]
     Active Substance: TEMOZOLOMIDE
     Route: 048
  10. TELOTRISTAT ETHYL [Suspect]
     Active Substance: TELOTRISTAT ETHYL
     Indication: CARCINOID TUMOUR
     Route: 048
     Dates: start: 20170831
  11. CAPECITABINE. [Concomitant]
     Active Substance: CAPECITABINE
     Dosage: TAKE WITH WATER AND WITHIN 30 MINUTES OF THE END A MEAL. TAKE FOR 14 DAYS, THEN OFF 14 DAYS.
     Route: 048
  12. FERROUS SULFATE. [Concomitant]
     Active Substance: FERROUS SULFATE
     Route: 048
  13. PIROXICAM. [Concomitant]
     Active Substance: PIROXICAM
     Route: 048

REACTIONS (1)
  - Nausea [Not Recovered/Not Resolved]

NARRATIVE: CASE EVENT DATE: 20170919
